FAERS Safety Report 6837120-8 (Version None)
Quarter: 2010Q3

REPORT INFORMATION
  Report Type: 
  Country: None (occurrence: None)
  Receive Date: 20100713
  Receipt Date: 20070503
  Transmission Date: 20110219
  Serious: No
  Sender: FDA-Public Use
  Company Number: US-PFIZER INC-2007037275

PATIENT
  Sex: Female
  Weight: 53.181 kg

DRUGS (2)
  1. CHANTIX [Suspect]
     Indication: SMOKING CESSATION THERAPY
     Dates: start: 20070423
  2. PROZAC [Concomitant]
     Indication: PAIN

REACTIONS (5)
  - ABDOMINAL PAIN [None]
  - BLADDER PAIN [None]
  - CYSTITIS [None]
  - CYSTITIS INTERSTITIAL [None]
  - SWELLING [None]
